FAERS Safety Report 24109243 (Version 1)
Quarter: 2024Q3

REPORT INFORMATION
  Report Type: Spontaneous
  Country: US (occurrence: US)
  Receive Date: 20240718
  Receipt Date: 20240718
  Transmission Date: 20241017
  Serious: No
  Sender: ABBVIE
  Company Number: US-ABBVIE-5840113

PATIENT
  Sex: Female

DRUGS (1)
  1. HUMIRA [Suspect]
     Active Substance: ADALIMUMAB
     Indication: Rheumatoid arthritis
     Route: 058
     Dates: start: 2023, end: 202405

REACTIONS (3)
  - Injection site hypersensitivity [Unknown]
  - Injection site urticaria [Unknown]
  - Injection site discharge [Not Recovered/Not Resolved]

NARRATIVE: CASE EVENT DATE: 20240101
